FAERS Safety Report 5989154-3 (Version None)
Quarter: 2008Q4

REPORT INFORMATION
  Report Type: 
  Country: None (occurrence: None)
  Receive Date: 20081209
  Receipt Date: 20081209
  Transmission Date: 20090506
  Serious: Yes (Hospitalization)
  Sender: FDA-Public Use
  Company Number: None

PATIENT
  Age: 53 Year
  Sex: Male
  Weight: 101.6057 kg

DRUGS (3)
  1. MYCOPHENOLATE MOFETIL [Suspect]
     Dosage: 1000MG ORALLY TWICE DAILY
     Dates: start: 20081111, end: 20081201
  2. TACROLIMUS [Concomitant]
  3. PREDNISONE BASED IMMUNOSUPPRESSION [Concomitant]

REACTIONS (9)
  - ANAEMIA [None]
  - BLOOD BICARBONATE DECREASED [None]
  - BLOOD CREATININE INCREASED [None]
  - DIARRHOEA [None]
  - FOCAL SEGMENTAL GLOMERULOSCLEROSIS [None]
  - HYPERKALAEMIA [None]
  - HYPERTENSION [None]
  - RENAL IMPAIRMENT [None]
  - THROMBOCYTOPENIA [None]
